FAERS Safety Report 9339770 (Version 1)
Quarter: 2013Q2

REPORT INFORMATION
  Report Type: Spontaneous
  Country: US (occurrence: US)
  Receive Date: 20130610
  Receipt Date: 20130610
  Transmission Date: 20140414
  Serious: No
  Sender: FDA-Public Use
  Company Number: US-ASTELLAS-2013US003287

PATIENT
  Age: 61 Year
  Sex: Male
  Weight: 77 kg

DRUGS (3)
  1. XTANDI [Suspect]
     Indication: PROSTATE CANCER
     Dosage: 160 MG, UID/QD
     Route: 048
     Dates: start: 20121221, end: 20130312
  2. MORPHINE SULFATE [Concomitant]
     Indication: PAIN
     Dosage: 30 MG, Q8 HOURS
     Route: 048
     Dates: start: 20111201
  3. PREDNISONE [Concomitant]
     Indication: PAIN
     Dosage: 5 MG, UID/QD
     Route: 048
     Dates: start: 20121201

REACTIONS (2)
  - Drug ineffective [Unknown]
  - Prostatic specific antigen increased [Recovered/Resolved]
